FAERS Safety Report 8610976-4 (Version None)
Quarter: 2012Q3

REPORT INFORMATION
  Report Type: 
  Country: None (occurrence: None)
  Receive Date: 20120420
  Receipt Date: 20110623
  Transmission Date: 20120928
  Serious: Yes (Other)
  Sender: FDA-Public Use
  Company Number: WAES 1106USA03285

PATIENT
  Age: 8 Year
  Sex: Male
  Weight: 29.9374 kg

DRUGS (2)
  1. NASONEX [Concomitant]
  2. SINGULAIR [Suspect]
     Indication: RHINITIS ALLERGIC
     Dosage: 5 MG/DAILY/PO
     Route: 048
     Dates: start: 20110609, end: 20110601

REACTIONS (2)
  - CONVULSION [None]
  - AFFECTIVE DISORDER [None]
